FAERS Safety Report 5005134-9 (Version None)
Quarter: 2006Q2

REPORT INFORMATION
  Report Type: 
  Country: None (occurrence: None)
  Receive Date: 20060518
  Receipt Date: 20060510
  Transmission Date: 20061013
  Serious: Yes (Hospitalization, Other)
  Sender: FDA-Public Use
  Company Number: PHBS2006BE07096

PATIENT
  Age: 14 Year
  Sex: Female

DRUGS (3)
  1. RITALIN [Suspect]
     Indication: ATTENTION DEFICIT/HYPERACTIVITY DISORDER
     Dosage: 30 MG/D
     Route: 048
  2. RITALIN-SR [Suspect]
     Indication: ATTENTION DEFICIT/HYPERACTIVITY DISORDER
     Dosage: 30 MG/D
     Route: 048
  3. RISPERDAL [Concomitant]
     Dosage: 1 MG/D
     Dates: start: 20051001

REACTIONS (2)
  - MENTAL DISORDER [None]
  - WOLFF-PARKINSON-WHITE SYNDROME [None]
